FAERS Safety Report 5699795-9 (Version None)
Quarter: 2008Q2

REPORT INFORMATION
  Report Type: 
  Country: None (occurrence: None)
  Receive Date: 20080410
  Receipt Date: 20080410
  Transmission Date: 20081010
  Serious: Yes (Life-Threatening, Hospitalization, Other)
  Sender: FDA-Public Use
  Company Number: None

PATIENT
  Age: 56 Year
  Sex: Female
  Weight: 97.5234 kg

DRUGS (3)
  1. HEPARIN [Suspect]
     Indication: ANTICOAGULANT THERAPY
     Dosage: BY THE BAGS DRIP ALL DAY I.V.
     Route: 042
     Dates: start: 20080114
  2. HEPARIN [Suspect]
     Indication: ANTICOAGULANT THERAPY
     Dosage: BY THE BAGS DRIP ALL DAY I.V.
     Route: 042
     Dates: start: 20080115
  3. HEPARIN [Suspect]
     Indication: ANTICOAGULANT THERAPY
     Dosage: BY THE BAGS DRIP ALL DAY I.V.
     Route: 042
     Dates: start: 20080116

REACTIONS (16)
  - ABDOMINAL PAIN UPPER [None]
  - ALOPECIA [None]
  - BLISTER [None]
  - DEHYDRATION [None]
  - DIARRHOEA [None]
  - DIZZINESS [None]
  - EATING DISORDER [None]
  - FLATULENCE [None]
  - HEADACHE [None]
  - HEART RATE INCREASED [None]
  - HYPERHIDROSIS [None]
  - HYPOTENSION [None]
  - INJECTION SITE PAIN [None]
  - NAUSEA [None]
  - SINUS DISORDER [None]
  - VOMITING [None]
